FAERS Safety Report 9828013 (Version 1)
Quarter: 2013Q4

REPORT INFORMATION
  Report Type: Spontaneous
  Country: US (occurrence: None)
  Receive Date: 20131120
  Receipt Date: 20131120
  Transmission Date: 20140711
  Serious: Yes (Other)
  Sender: FDA-Public Use
  Company Number: 2013-002661

PATIENT
  Age: 40 Year
  Sex: Female

DRUGS (1)
  1. LO LOESTRIN FE (NORETHINDRONE ACETATE, ETHINYLESTRADIOL, FERROUS FUMARATE) TABLET, 1000/10UG [Suspect]
     Route: 048
     Dates: start: 2013

REACTIONS (5)
  - Thrombotic stroke [None]
  - Feeling abnormal [None]
  - Balance disorder [None]
  - Sensory loss [None]
  - Confusional state [None]
